FAERS Safety Report 13386693 (Version 1)
Quarter: 2017Q1

REPORT INFORMATION
  Report Type: Spontaneous
  Country: JP (occurrence: JP)
  Receive Date: 20170330
  Receipt Date: 20170330
  Transmission Date: 20170429
  Serious: Yes (Hospitalization)
  Sender: FDA-Public Use
  Company Number: JP-ROCHE-1910178

PATIENT
  Age: 65 Year
  Sex: Male

DRUGS (6)
  1. TACROLIMUS HYDRATE [Concomitant]
     Active Substance: TACROLIMUS
     Dosage: DOSAGE IS UNCERTAIN.
     Route: 065
  2. CELLCEPT [Suspect]
     Active Substance: MYCOPHENOLATE MOFETIL\MYCOPHENOLATE MOFETIL HYDROCHLORIDE
     Indication: PRODUCT USED FOR UNKNOWN INDICATION
     Dosage: DOSAGE IS UNCERTAIN.
     Route: 048
  3. BASILIXIMAB [Concomitant]
     Active Substance: BASILIXIMAB
     Dosage: DOSAGE IS UNCERTAIN.
     Route: 065
  4. RITUXAN [Suspect]
     Active Substance: RITUXIMAB
     Indication: PROPHYLAXIS AGAINST TRANSPLANT REJECTION
     Dosage: STRENGTH: 10MG/ML
     Route: 065
  5. ROXITHROMYCIN [Concomitant]
     Active Substance: ROXITHROMYCIN
     Dosage: DOSAGE IS UNCERTAIN.
     Route: 065
  6. METHYLPREDNISOLONE. [Concomitant]
     Active Substance: METHYLPREDNISOLONE
     Dosage: DOSAGE IS UNCERTAIN.
     Route: 065

REACTIONS (3)
  - Cytomegalovirus enterocolitis [Unknown]
  - Cytomegalovirus viraemia [Unknown]
  - Neutrophil count decreased [Unknown]
